FAERS Safety Report 11603916 (Version 1)
Quarter: 2015Q4

REPORT INFORMATION
  Report Type: Spontaneous
  Country: ZA (occurrence: ZA)
  Receive Date: 20151007
  Receipt Date: 20151007
  Transmission Date: 20160304
  Serious: Yes (Death, Hospitalization, Other)
  Sender: FDA-Public Use
  Company Number: ZA-AMGEN-ZAFSP2015103516

PATIENT
  Age: 79 Year
  Sex: Female

DRUGS (2)
  1. NEUPOGEN [Suspect]
     Active Substance: FILGRASTIM
     Indication: WHITE BLOOD CELL COUNT ABNORMAL
     Dosage: UNK
     Route: 058
     Dates: start: 20150702
  2. NEULASTIM [Suspect]
     Active Substance: PEGFILGRASTIM
     Indication: WHITE BLOOD CELL COUNT ABNORMAL
     Dosage: UNK
     Route: 058
     Dates: start: 20150625

REACTIONS (3)
  - Cerebrovascular accident [Fatal]
  - Lung infiltration [Fatal]
  - No therapeutic response [Unknown]

NARRATIVE: CASE EVENT DATE: 2015
